FAERS Safety Report 8779459 (Version 2)
Quarter: 2012Q4

REPORT INFORMATION
  Report Type: 
  Country: JP (occurrence: JP)
  Receive Date: 20120912
  Receipt Date: 20121004
  Transmission Date: 20130627
  Serious: Yes (Other)
  Sender: FDA-Public Use
  Company Number: JP-ASTRAZENECA-2011SE75659

PATIENT
  Age: 70 Year
  Sex: Male

DRUGS (4)
  1. TENORMIN [Suspect]
     Indication: TACHYCARDIA
     Route: 048
  2. PSYCHOTROPIC AGENTS [Concomitant]
     Dosage: Dose unknown
     Route: 065
  3. ANTIDIABETIC AGENTS [Concomitant]
     Dosage: Dose unknown
     Route: 065
  4. OTHER AGENTS AFFECTING RESPIRATORY ORGANS [Concomitant]
     Dosage: Dose unknown
     Route: 065

REACTIONS (1)
  - Pulmonary alveolar haemorrhage [Recovering/Resolving]
